FAERS Safety Report 17182719 (Version 2)
Quarter: 2020Q1

REPORT INFORMATION
  Report Type: Spontaneous
  Country: US (occurrence: US)
  Receive Date: 20191220
  Receipt Date: 20200206
  Transmission Date: 20200409
  Serious: Yes (Hospitalization, Congenital Anomaly)
  Sender: FDA-Public Use
  Company Number: US-SA-2019SA350906

PATIENT
  Age: 46 Year
  Sex: Male
  Weight: 162.4 kg

DRUGS (23)
  1. PLAVIX [Suspect]
     Active Substance: CLOPIDOGREL BISULFATE
     Dosage: 75 MG, QD
     Route: 048
     Dates: start: 20190720, end: 20190811
  2. ACETYLSALICYLIC ACID [Suspect]
     Active Substance: ASPIRIN
     Dosage: 100 MG, QD
     Route: 048
     Dates: start: 20190921, end: 20191010
  3. PROPOFOL. [Concomitant]
     Active Substance: PROPOFOL
     Dosage: 310 MG
     Route: 065
     Dates: start: 20190719, end: 20190719
  4. ACETYLSALICYLIC ACID [Suspect]
     Active Substance: ASPIRIN
     Dosage: 100 MG, QD
     Route: 048
     Dates: start: 20191011, end: 20191011
  5. ATORVASTATIN [Concomitant]
     Active Substance: ATORVASTATIN
     Indication: PROPHYLAXIS
     Dosage: 80 MG, QD
     Route: 065
     Dates: start: 20190718
  6. LIDOCAINE. [Concomitant]
     Active Substance: LIDOCAINE
     Dosage: 100 MG
     Route: 065
     Dates: start: 20190719, end: 20190719
  7. PLAVIX [Suspect]
     Active Substance: CLOPIDOGREL BISULFATE
     Dosage: 75 MG, QD
     Route: 048
     Dates: start: 20190812, end: 20190812
  8. ACETYLSALICYLIC ACID [Suspect]
     Active Substance: ASPIRIN
     Dosage: 100 MG, QD
     Route: 048
     Dates: start: 20190920, end: 20190920
  9. LIDOCAINE. [Concomitant]
     Active Substance: LIDOCAINE
     Indication: ADVERSE EVENT
     Dosage: 10 UNK, QD
     Route: 065
     Dates: start: 20191010, end: 20191010
  10. ACETAMINOPHEN. [Concomitant]
     Active Substance: ACETAMINOPHEN
     Dosage: 1300 MG
     Route: 065
     Dates: start: 20190718, end: 20190718
  11. ACETYLSALICYLIC ACID [Suspect]
     Active Substance: ASPIRIN
     Dosage: 100 MG, QD
     Route: 048
     Dates: start: 20190812, end: 20190812
  12. ACETAMINOPHEN. [Concomitant]
     Active Substance: ACETAMINOPHEN
     Dosage: 650 MG
     Route: 065
     Dates: start: 20190717, end: 20190717
  13. FORSKOLIN [Concomitant]
     Active Substance: COLFORSIN
     Indication: PROPHYLAXIS
     Dosage: 500 MG, QD
     Route: 065
  14. FENTANYL. [Concomitant]
     Active Substance: FENTANYL
     Indication: ADVERSE EVENT
     Dosage: 100 UG, QD
     Route: 065
     Dates: start: 20191010, end: 20191010
  15. ANCEF [Concomitant]
     Active Substance: CEFAZOLIN SODIUM
     Indication: ADVERSE EVENT
     Dosage: 2 G, QD
     Route: 065
     Dates: start: 20191010, end: 20191010
  16. ACETYLSALICYLIC ACID [Suspect]
     Active Substance: ASPIRIN
     Dosage: 100 MG, QD
     Route: 048
     Dates: start: 20190813, end: 20190919
  17. NORMAL SALINE [Concomitant]
     Active Substance: SODIUM CHLORIDE
     Dosage: 20 MG
     Route: 065
     Dates: start: 20190719, end: 20190719
  18. PLAVIX [Suspect]
     Active Substance: CLOPIDOGREL BISULFATE
     Dosage: 75 MG, QD
     Route: 048
     Dates: start: 20190719, end: 20190719
  19. ACETYLSALICYLIC ACID [Suspect]
     Active Substance: ASPIRIN
     Dosage: 100 MG, QD
     Route: 048
     Dates: start: 20190720, end: 20190811
  20. TRINTELLIX [Concomitant]
     Active Substance: VORTIOXETINE HYDROBROMIDE
     Dosage: 20 MG, QD
     Route: 065
  21. VERSED [Concomitant]
     Active Substance: MIDAZOLAM HYDROCHLORIDE
     Indication: ADVERSE EVENT
     Dosage: 4 MG, QD
     Route: 065
     Dates: start: 20191010, end: 20191010
  22. ACETAMINOPHEN. [Concomitant]
     Active Substance: ACETAMINOPHEN
     Dosage: 650 MG
     Route: 065
     Dates: start: 20190719, end: 20190719
  23. CIALIS [Concomitant]
     Active Substance: TADALAFIL
     Dosage: 50 MG
     Route: 065

REACTIONS (1)
  - Atrial septal defect [Recovered/Resolved]

NARRATIVE: CASE EVENT DATE: 20190719
